FAERS Safety Report 18193486 (Version 1)
Quarter: 2020Q3

REPORT INFORMATION
  Report Type: Spontaneous
  Country: US (occurrence: US)
  Receive Date: 20200825
  Receipt Date: 20200825
  Transmission Date: 20201103
  Serious: Yes (Other)
  Sender: FDA-Public Use
  Company Number: US-SA-2020SA219272

PATIENT

DRUGS (1)
  1. LANTUS SOLOSTAR [Suspect]
     Active Substance: INSULIN GLARGINE
     Indication: DIABETES MELLITUS
     Dosage: 40 IU, QD
     Route: 065

REACTIONS (5)
  - Immunodeficiency [Unknown]
  - Injection site bruising [Unknown]
  - Device operational issue [Unknown]
  - Injection site pain [Unknown]
  - Asthenia [Unknown]
